FAERS Safety Report 17395301 (Version 1)
Quarter: 2020Q1

REPORT INFORMATION
  Report Type: Spontaneous
  Country: US (occurrence: US)
  Receive Date: 20200210
  Receipt Date: 20200210
  Transmission Date: 20200409
  Serious: No
  Sender: FDA-Public Use
  Company Number: US-HTU-2019US018472

PATIENT
  Sex: Male

DRUGS (9)
  1. VITAMIN E                          /00110501/ [Concomitant]
     Active Substance: TOCOPHEROL
  2. PROBIOTIC 10 [Concomitant]
     Active Substance: DIETARY SUPPLEMENT\PROBIOTICS
  3. VITAMIN C [Concomitant]
     Active Substance: ASCORBIC ACID
  4. COENZYME Q10 [Concomitant]
     Active Substance: UBIDECARENONE
  5. RED YEAST RICE [Concomitant]
     Active Substance: DIETARY SUPPLEMENT
  6. VITAMIN D                          /00318501/ [Concomitant]
     Active Substance: CHOLECALCIFEROL
  7. MULTIVITAMINS                      /07504101/ [Concomitant]
     Active Substance: VITAMINS
  8. VALCHLOR [Suspect]
     Active Substance: MECHLORETHAMINE
     Indication: CUTANEOUS T-CELL LYMPHOMA
     Dosage: THIN FILM, SINGLE
     Route: 061
     Dates: start: 20181218
  9. TURMERIC                           /01079601/ [Concomitant]
     Active Substance: HERBALS\TURMERIC

REACTIONS (5)
  - Erythema [Unknown]
  - Pruritus [Unknown]
  - Urticaria [Not Recovered/Not Resolved]
  - Skin discolouration [Unknown]
  - Rash papular [Not Recovered/Not Resolved]
